FAERS Safety Report 9516633 (Version 2)
Quarter: 2013Q4

REPORT INFORMATION
  Report Type: Report from Study
  Country: JP (occurrence: JP)
  Receive Date: 20130911
  Receipt Date: 20131008
  Transmission Date: 20140711
  Serious: Yes (Hospitalization)
  Sender: FDA-Public Use
  Company Number: JP-GLAXOSMITHKLINE-B0915283A

PATIENT
  Sex: Male
  Weight: 79 kg

DRUGS (2)
  1. VOTRIENT 200MG [Suspect]
     Indication: SYNOVIAL SARCOMA
     Dosage: 800MG PER DAY
     Route: 048
     Dates: start: 20121107, end: 20130806
  2. GASTER D [Concomitant]
     Indication: PROPHYLAXIS
     Route: 048

REACTIONS (3)
  - Hepatic function abnormal [Recovered/Resolved]
  - Hypertension [Recovering/Resolving]
  - Pleural effusion [Recovering/Resolving]
